FAERS Safety Report 12908353 (Version 1)
Quarter: 2016Q4

REPORT INFORMATION
  Report Type: Report from Study
  Country: US (occurrence: US)
  Receive Date: 20161103
  Receipt Date: 20161103
  Transmission Date: 20170207
  Serious: Yes (Hospitalization)
  Sender: FDA-Public Use
  Company Number: US-EXELIXIS-CABO-16007440

PATIENT
  Sex: Female

DRUGS (23)
  1. COMETRIQ [Suspect]
     Active Substance: CABOZANTINIB S-MALATE
     Indication: METASTASES TO BONE
  2. PREDNISONE. [Concomitant]
     Active Substance: PREDNISONE
  3. COMETRIQ [Suspect]
     Active Substance: CABOZANTINIB S-MALATE
     Indication: LUNG NEOPLASM MALIGNANT
     Dosage: 20 MG, QOD
     Route: 048
     Dates: start: 201512, end: 2016
  4. ALLOPURINOL. [Concomitant]
     Active Substance: ALLOPURINOL
  5. KLONOPIN [Concomitant]
     Active Substance: CLONAZEPAM
  6. LASIX [Concomitant]
     Active Substance: FUROSEMIDE
  7. COMETRIQ [Suspect]
     Active Substance: CABOZANTINIB S-MALATE
     Indication: METASTASES TO LYMPH NODES
  8. ASPIRIN. [Concomitant]
     Active Substance: ASPIRIN
  9. LOPERAMIDE [Concomitant]
     Active Substance: LOPERAMIDE
  10. OXYCONTIN [Concomitant]
     Active Substance: OXYCODONE HYDROCHLORIDE
  11. MAGNESIUM [Concomitant]
     Active Substance: MAGNESIUM
  12. OXYCODONE [Concomitant]
     Active Substance: OXYCODONE
  13. COMETRIQ [Suspect]
     Active Substance: CABOZANTINIB S-MALATE
     Indication: THYROID CANCER
     Dosage: 20 MG, QD
     Route: 048
     Dates: start: 20150822, end: 201512
  14. CLOBETASOL [Concomitant]
     Active Substance: CLOBETASOL
  15. LIDOCAINE. [Concomitant]
     Active Substance: LIDOCAINE
  16. REQUIP [Concomitant]
     Active Substance: ROPINIROLE HYDROCHLORIDE
  17. ATENOLOL. [Concomitant]
     Active Substance: ATENOLOL
  18. CRESTOR [Concomitant]
     Active Substance: ROSUVASTATIN CALCIUM
  19. DIPHENOXYLATE [Concomitant]
     Active Substance: DIPHENOXYLATE
  20. CALCIUM [Concomitant]
     Active Substance: CALCIUM
  21. PRILOSEC [Concomitant]
     Active Substance: OMEPRAZOLE MAGNESIUM
  22. PROMETHAZINE [Concomitant]
     Active Substance: PROMETHAZINE\PROMETHAZINE HYDROCHLORIDE
  23. SENNA [Concomitant]
     Active Substance: SENNA LEAF\SENNOSIDES\SENNOSIDES A AND B

REACTIONS (1)
  - Cardiac disorder [Unknown]
